FAERS Safety Report 8305863-5 (Version None)
Quarter: 2012Q1

REPORT INFORMATION
  Report Type: 
  Country: None (occurrence: None)
  Receive Date: 20120326
  Receipt Date: 20111025
  Transmission Date: 20120608
  Serious: Yes (Disabling, Other)
  Sender: FDA-Public Use
  Company Number: PHEH2011US00777

PATIENT
  Age: 61 Year
  Sex: Female

DRUGS (1)
  1. TASIGNA [Suspect]
     Indication: CHRONIC MYELOID LEUKAEMIA
     Dosage: 200 MG, BID, ORAL
     Route: 048
     Dates: start: 20110517

REACTIONS (11)
  - PRURITUS [None]
  - MYALGIA [None]
  - NIGHT SWEATS [None]
  - MUSCULOSKELETAL STIFFNESS [None]
  - JAUNDICE [None]
  - RASH [None]
  - ARTHRALGIA [None]
  - ABDOMINAL DISCOMFORT [None]
  - LIVER DISORDER [None]
  - ABDOMINAL PAIN [None]
  - HEADACHE [None]
